FAERS Safety Report 5766411-7 (Version None)
Quarter: 2008Q2

REPORT INFORMATION
  Report Type: 
  Country: None (occurrence: None)
  Receive Date: 20080611
  Receipt Date: 20080123
  Transmission Date: 20081010
  Serious: No
  Sender: FDA-Public Use
  Company Number: US-BOEHRINGER INGELHEIM GMBH, GERMANY-2007-BP-17416BP

PATIENT
  Sex: Female
  Weight: 59 kg

DRUGS (6)
  1. MIRAPEX [Suspect]
     Indication: RESTLESS LEGS SYNDROME
     Dates: start: 20021126, end: 20050801
  2. ESTRACE [Concomitant]
     Indication: HORMONE REPLACEMENT THERAPY
  3. ZOLOFT [Concomitant]
     Indication: DEPRESSION
  4. LIPITOR [Concomitant]
     Indication: BLOOD CHOLESTEROL INCREASED
  5. SOMA [Concomitant]
     Indication: RESTLESS LEGS SYNDROME
  6. SOMA [Concomitant]
     Indication: PAIN

REACTIONS (7)
  - ANXIETY [None]
  - DEPRESSION [None]
  - EMOTIONAL DISTRESS [None]
  - FEAR [None]
  - PAIN [None]
  - PATHOLOGICAL GAMBLING [None]
  - STRESS [None]
